FAERS Safety Report 9726376 (Version 1)
Quarter: 2013Q4

REPORT INFORMATION
  Report Type: Spontaneous
  Country: US (occurrence: None)
  Receive Date: 20131202
  Receipt Date: 20131202
  Transmission Date: 20140711
  Serious: Yes (Other)
  Sender: FDA-Public Use
  Company Number: None

PATIENT
  Age: 33 Year
  Sex: Male
  Weight: 86.18 kg

DRUGS (2)
  1. RITALIN 5MG [Suspect]
     Route: 048
  2. RITALIN [Concomitant]

REACTIONS (2)
  - Disturbance in attention [None]
  - Disturbance in attention [None]
